FAERS Safety Report 5692326-9 (Version None)
Quarter: 2008Q2

REPORT INFORMATION
  Report Type: 
  Country: None (occurrence: None)
  Receive Date: 20080328
  Receipt Date: 20071218
  Transmission Date: 20081010
  Serious: Yes (Other)
  Sender: FDA-Public Use
  Company Number: US-WYE-H00771907

PATIENT
  Age: 54 Year
  Sex: Male
  Weight: 150.73 kg

DRUGS (17)
  1. TORISEL [Suspect]
     Indication: RENAL CELL CARCINOMA
     Dosage: 25 MG 1X PER 1 WK, INTRAVENOUS
     Route: 042
     Dates: start: 20070823
  2. LORCET (HYDRCODONE BITARTATE/PARACETAMOL) [Concomitant]
  3. ZANTAC [Concomitant]
  4. AMBIEN [Concomitant]
  5. METOLAZONE [Concomitant]
  6. PROCARDIA XL [Concomitant]
  7. LASIX [Concomitant]
  8. LORAZEPAM [Concomitant]
  9. MICARDIS [Concomitant]
  10. ZOLOFT [Concomitant]
  11. FLEXERIL [Concomitant]
  12. LEXAPRO [Concomitant]
  13. BENADRYL [Concomitant]
  14. IBUPROFEN [Concomitant]
  15. INSULIN (INSULIN) [Concomitant]
  16. REGLAN [Concomitant]
  17. PHENERGAN (DIBROMPROPAMIDINE ISETIONATE/PROMETHAZINE HYDROCHLORIDE) [Concomitant]

REACTIONS (1)
  - HALLUCINATION [None]
